FAERS Safety Report 4423230-1 (Version None)
Quarter: 2004Q3

REPORT INFORMATION
  Report Type: 
  Country: None (occurrence: None)
  Receive Date: 20040805
  Receipt Date: 20040721
  Transmission Date: 20050211
  Serious: Yes (Death, Life-Threatening)
  Sender: FDA-Public Use
  Company Number: 237245

PATIENT
  Age: 17 Year
  Sex: Male

DRUGS (12)
  1. NOVOSEVEN [Suspect]
     Indication: POST PROCEDURAL HAEMORRHAGE
     Dates: start: 20040419, end: 20040506
  2. BUMETANIDE [Concomitant]
  3. TAZOCILLINE (TAZOBACTAM SODIUM, PIPERACILLIN SODIUM) [Concomitant]
  4. FLUCONAZOLE [Concomitant]
  5. RITUXAN [Concomitant]
  6. SOLU-MEDROL [Concomitant]
  7. OMEPRAZOLE [Concomitant]
  8. ROCEPHIN [Concomitant]
  9. LASIX [Concomitant]
  10. TARGOCID [Concomitant]
  11. THIOPENTAL SODIUM [Concomitant]
  12. RIVOTRIL (CLONAZEPAM) [Concomitant]

REACTIONS (22)
  - ACIDOSIS [None]
  - BLOOD LACTIC ACID INCREASED [None]
  - COAGULOPATHY [None]
  - COMA [None]
  - CONVULSION [None]
  - ENCEPHALOPATHY [None]
  - GENERAL PHYSICAL HEALTH DETERIORATION [None]
  - HAEMODIALYSIS [None]
  - HAEMODYNAMIC INSTABILITY [None]
  - HAEMORRHAGE [None]
  - HEPATIC FUNCTION ABNORMAL [None]
  - HYPERAMMONAEMIA [None]
  - INTESTINAL ISCHAEMIA [None]
  - LABORATORY TEST ABNORMAL [None]
  - LARGE INTESTINE PERFORATION [None]
  - LEUKOPENIA [None]
  - PERITONITIS [None]
  - POST PROCEDURAL COMPLICATION [None]
  - POST PROCEDURAL HAEMATOMA [None]
  - THROMBOCYTOPENIA [None]
  - THROMBOSIS [None]
  - UNEVALUABLE EVENT [None]
